FAERS Safety Report 5563517-2 (Version None)
Quarter: 2007Q4

REPORT INFORMATION
  Report Type: 
  Country: None (occurrence: None)
  Receive Date: 20071217
  Receipt Date: 20070612
  Transmission Date: 20080405
  Serious: No
  Sender: FDA-Public Use
  Company Number: US-ASTRAZENECA-2007UW14071

PATIENT
  Sex: Female

DRUGS (2)
  1. CRESTOR [Suspect]
     Indication: BLOOD CHOLESTEROL INCREASED
     Dosage: 90 COUNT BOTTLE
     Route: 048
     Dates: start: 20060901
  2. LIPITOR [Concomitant]
     Route: 048
     Dates: end: 20060901

REACTIONS (2)
  - LIPIDS INCREASED [None]
  - POOR QUALITY DRUG ADMINISTERED [None]
